FAERS Safety Report 5451337-9 (Version None)
Quarter: 2007Q3

REPORT INFORMATION
  Report Type: 
  Country: None (occurrence: None)
  Receive Date: 20070911
  Receipt Date: 20070911
  Transmission Date: 20080115
  Serious: Yes (Life-Threatening)
  Sender: FDA-Public Use
  Company Number: None

PATIENT
  Age: 25 Year
  Sex: Male
  Weight: 81.6475 kg

DRUGS (1)
  1. ACCUTANE [Suspect]
     Indication: ACNE
     Dosage: 2 PER DAY
     Dates: start: 19950101, end: 19951001

REACTIONS (13)
  - ABDOMINAL PAIN UPPER [None]
  - ARTERIAL OCCLUSIVE DISEASE [None]
  - CEREBROVASCULAR ACCIDENT [None]
  - DRUG EFFECT PROLONGED [None]
  - FACIAL PAIN [None]
  - IMPAIRED WORK ABILITY [None]
  - MIGRAINE [None]
  - MYOCARDIAL INFARCTION [None]
  - NERVE INJURY [None]
  - PAIN [None]
  - SKIN LACERATION [None]
  - SUICIDE ATTEMPT [None]
  - VENOUS OCCLUSION [None]
